FAERS Safety Report 9136994 (Version 1)
Quarter: 2013Q1

REPORT INFORMATION
  Report Type: Spontaneous
  Country: US (occurrence: US)
  Receive Date: 20130304
  Receipt Date: 20130304
  Transmission Date: 20140127
  Serious: No
  Sender: FDA-Public Use
  Company Number: US-ABBOTT-13P-163-1040393-00

PATIENT
  Sex: Female

DRUGS (1)
  1. ANDROGEL [Suspect]
     Indication: VAGINAL DISORDER
     Dosage: 5 GRAM
     Dates: start: 2011, end: 2011

REACTIONS (2)
  - Off label use [Unknown]
  - Drug ineffective [Unknown]
